FAERS Safety Report 13649927 (Version 1)
Quarter: 2017Q2

REPORT INFORMATION
  Report Type: Spontaneous
  Country: US (occurrence: US)
  Receive Date: 20170613
  Receipt Date: 20170613
  Transmission Date: 20170830
  Serious: Yes (Death)
  Sender: FDA-Public Use
  Company Number: None

PATIENT
  Age: 93 Year
  Sex: Male
  Weight: 91 kg

DRUGS (2)
  1. HEPARIN [Suspect]
     Active Substance: HEPARIN SODIUM
     Indication: PULMONARY EMBOLISM
     Dosage: OTHER FREQUENCY:4 HOURS;?
     Route: 041
     Dates: start: 20170415, end: 20170416
  2. HEPARIN [Suspect]
     Active Substance: HEPARIN SODIUM
     Indication: THROMBOSIS PROPHYLAXIS
     Route: 058
     Dates: start: 20170416, end: 20170417

REACTIONS (5)
  - Pulmonary embolism [None]
  - Oesophagitis [None]
  - Septic shock [None]
  - Pneumonia [None]
  - Varices oesophageal [None]

NARRATIVE: CASE EVENT DATE: 20170418
